FAERS Safety Report 20891550 (Version 1)
Quarter: 2022Q2

REPORT INFORMATION
  Report Type: Spontaneous
  Country: US (occurrence: US)
  Receive Date: 20220530
  Receipt Date: 20220530
  Transmission Date: 20220721
  Serious: Yes (Hospitalization, Other)
  Sender: FDA-Public Use
  Company Number: US-LUPIN PHARMACEUTICALS INC.-2022-07657

PATIENT
  Age: 56 Year
  Sex: Male

DRUGS (16)
  1. AZITHROMYCIN [Suspect]
     Active Substance: AZITHROMYCIN
     Indication: Mycobacterium chelonae infection
     Dosage: UNK
     Route: 048
     Dates: start: 20200123
  2. SULFAMETHOXAZOLE AND TRIMETHOPRIM [Suspect]
     Active Substance: SULFAMETHOXAZOLE\TRIMETHOPRIM
     Indication: Mycobacterium chelonae infection
     Dosage: UNK
     Route: 048
     Dates: start: 20200123
  3. TEDIZOLID [Suspect]
     Active Substance: TEDIZOLID
     Indication: Mycobacterium chelonae infection
     Dosage: UNK
     Route: 065
  4. OMADACYCLINE [Suspect]
     Active Substance: OMADACYCLINE
     Indication: Mycobacterium chelonae infection
     Dosage: UNK
     Route: 065
  5. CLOFAZIMINE [Suspect]
     Active Substance: CLOFAZIMINE
     Indication: Mycobacterium chelonae infection
     Dosage: UNK
     Route: 065
  6. BEDAQUILINE [Suspect]
     Active Substance: BEDAQUILINE
     Indication: Mycobacterium chelonae infection
     Dosage: UNK
     Route: 065
  7. IMIPENEM [Suspect]
     Active Substance: IMIPENEM
     Indication: Mycobacterium chelonae infection
     Dosage: UNK
     Route: 065
  8. MEROPENEM [Suspect]
     Active Substance: MEROPENEM
     Indication: Mycobacterium chelonae infection
     Dosage: UNK
     Route: 065
  9. VABORBACTAM [Suspect]
     Active Substance: VABORBACTAM
     Indication: Mycobacterium chelonae infection
     Dosage: UNK
     Route: 065
  10. TOBRAMYCIN [Concomitant]
     Active Substance: TOBRAMYCIN
     Indication: Mycobacterium chelonae infection
     Dosage: UNK
     Route: 042
     Dates: start: 20200123
  11. PREDNISONE [Concomitant]
     Active Substance: PREDNISONE
     Indication: Seronegative arthritis
     Dosage: UNK UPTO 40MG/DAY
     Route: 065
  12. PREDNISONE [Concomitant]
     Active Substance: PREDNISONE
     Dosage: 10 MG, QD
     Route: 048
  13. METHOTREXATE [Concomitant]
     Active Substance: METHOTREXATE
     Indication: Seronegative arthritis
     Dosage: UNK
     Route: 065
     Dates: start: 201911
  14. ETANERCEPT [Concomitant]
     Active Substance: ETANERCEPT
     Indication: Seronegative arthritis
     Dosage: UNK
     Route: 065
     Dates: start: 201911
  15. ADALIMUMAB [Concomitant]
     Active Substance: ADALIMUMAB
     Indication: Seronegative arthritis
     Dosage: UNK
     Route: 065
     Dates: start: 201911
  16. TOFACITINIB [Concomitant]
     Active Substance: TOFACITINIB
     Indication: Seronegative arthritis
     Dosage: UNK
     Route: 065
     Dates: start: 201911

REACTIONS (4)
  - Drug ineffective for unapproved indication [Unknown]
  - Drug resistance [Unknown]
  - Gastrointestinal disorder [Recovered/Resolved]
  - Off label use [Unknown]
